FAERS Safety Report 22531790 (Version 1)
Quarter: 2023Q2

REPORT INFORMATION
  Report Type: Spontaneous
  Country: US (occurrence: None)
  Receive Date: 20230606
  Receipt Date: 20230606
  Transmission Date: 20230721
  Serious: No
  Sender: FDA-Public Use
  Company Number: None

PATIENT
  Age: 44 Year
  Sex: Female

DRUGS (6)
  1. ACTEMRA ACTPEN [Suspect]
     Active Substance: TOCILIZUMAB
     Indication: Rheumatoid arthritis
     Dosage: OTHER QUANTITY : 162MG/0.9MI;?FREQUENCY : WEEKLY;?
     Route: 058
     Dates: start: 20230116
  2. DULOXETINE [Concomitant]
     Active Substance: DULOXETINE
  3. SINGULAIR [Concomitant]
     Active Substance: MONTELUKAST SODIUM
  4. NAPROXEN [Concomitant]
     Active Substance: NAPROXEN
  5. OXYCODONE [Concomitant]
     Active Substance: OXYCODONE
  6. VALACYCLOVIR [Concomitant]
     Active Substance: VALACYCLOVIR HYDROCHLORIDE

REACTIONS (2)
  - Nasal congestion [None]
  - Pain [None]

NARRATIVE: CASE EVENT DATE: 20230527
